FAERS Safety Report 9106344 (Version 1)
Quarter: 2013Q1

REPORT INFORMATION
  Report Type: Report from Study
  Country: US (occurrence: US)
  Receive Date: 20130221
  Receipt Date: 20130221
  Transmission Date: 20140127
  Serious: Yes (Hospitalization)
  Sender: FDA-Public Use
  Company Number: US-ABBOTT-13P-163-1051417-00

PATIENT
  Sex: Female

DRUGS (1)
  1. HUMIRA [Suspect]
     Indication: PRODUCT USED FOR UNKNOWN INDICATION

REACTIONS (9)
  - Dyspepsia [Unknown]
  - Dehydration [Unknown]
  - Pneumonia [Unknown]
  - Bronchitis [Unknown]
  - Bone pain [Unknown]
  - Erythema [Unknown]
  - Lip discolouration [Unknown]
  - Eye disorder [Unknown]
  - Laryngitis [Unknown]
